FAERS Safety Report 8863026 (Version 2)
Quarter: 2012Q4

REPORT INFORMATION
  Report Type: Report from Study
  Country: US (occurrence: US)
  Receive Date: 20121026
  Receipt Date: 20121122
  Transmission Date: 20130627
  Serious: Yes (Hospitalization, Other)
  Sender: FDA-Public Use
  Company Number: US-BRISTOL-MYERS SQUIBB COMPANY-17046962

PATIENT
  Age: 57 Year
  Sex: Female
  Weight: 89.5 kg

DRUGS (11)
  1. COUMADIN [Suspect]
     Route: 048
     Dates: start: 200811, end: 20120610
  2. TREPROSTINIL [Concomitant]
     Indication: PULMONARY ARTERIAL HYPERTENSION
     Dosage: UT-15C SR,4mg,2 in 1D,Oral, 03Jun2012-ong
     Route: 048
     Dates: start: 20070430
  3. GABAPENTIN [Concomitant]
     Indication: PAIN
     Route: 048
  4. CLORAZEPATE [Concomitant]
     Indication: ANXIETY
     Route: 048
  5. ETODOLAC [Concomitant]
     Indication: PAIN
     Route: 048
  6. HYDROXYZINE [Concomitant]
     Indication: HYPERSENSITIVITY
     Route: 048
  7. POTASSIUM CHLORIDE [Concomitant]
     Indication: PROPHYLAXIS
     Route: 048
  8. LORATADINE [Concomitant]
     Indication: HYPERSENSITIVITY
     Route: 048
  9. LORAZEPAM [Concomitant]
     Indication: ANXIETY
     Route: 048
  10. PERCOCET [Concomitant]
     Indication: PAIN
     Dosage: 1DF:5-325mg
     Route: 048
  11. ZOLOFT [Concomitant]
     Indication: DEPRESSION
     Route: 048

REACTIONS (7)
  - Cholecystitis acute [Recovered/Resolved]
  - Renal failure acute [Recovered/Resolved]
  - Anaemia [Recovered/Resolved]
  - Post procedural haemorrhage [Unknown]
  - Intentional overdose [Unknown]
  - Suicidal ideation [Unknown]
  - Pneumonia [Unknown]
